FAERS Safety Report 11740424 (Version 2)
Quarter: 2015Q4

REPORT INFORMATION
  Report Type: Spontaneous
  Country: US (occurrence: US)
  Receive Date: 20151110
  Receipt Date: 20151120
  Transmission Date: 20160304
  Serious: No
  Sender: FDA-Public Use
  Company Number: US-ELI_LILLY_AND_COMPANY-US201205005205

PATIENT
  Age: 73 Year
  Sex: Female

DRUGS (33)
  1. SINGULAIR [Concomitant]
     Active Substance: MONTELUKAST SODIUM
     Dosage: 10 MG, QD
  2. ALLEGRA [Concomitant]
     Active Substance: FEXOFENADINE HYDROCHLORIDE
     Dosage: UNK, PRN
  3. VITAMIN C [Concomitant]
     Active Substance: ASCORBIC ACID
     Dosage: 500 MG, QD
  4. ALBUTEROL SULFATE. [Concomitant]
     Active Substance: ALBUTEROL SULFATE
     Indication: WHEEZING
     Dosage: UNK, QID
  5. FORTEO [Suspect]
     Active Substance: TERIPARATIDE
     Dosage: 20 UG, QD
     Route: 065
  6. FORTEO [Suspect]
     Active Substance: TERIPARATIDE
     Dosage: 20 UG, QD
     Route: 065
  7. ALPRAZOLAM. [Concomitant]
     Active Substance: ALPRAZOLAM
     Dosage: 0.5 MG, PRN
  8. NEURONTIN [Concomitant]
     Active Substance: GABAPENTIN
     Dosage: 900 MG, TID
  9. KETOCONAZOL [Concomitant]
     Active Substance: KETOCONAZOLE
     Dosage: UNK, BID
  10. IRON [Concomitant]
     Active Substance: IRON
     Dosage: 325 MG, QD
  11. DEMADEX [Concomitant]
     Active Substance: TORSEMIDE
     Dosage: 40 MG, QD
  12. PROZAC [Concomitant]
     Active Substance: FLUOXETINE HYDROCHLORIDE
     Dosage: 40 MG, QD
  13. NEURONTIN [Concomitant]
     Active Substance: GABAPENTIN
     Dosage: 300 MG, QID
  14. PEPCID [Concomitant]
     Active Substance: FAMOTIDINE
     Dosage: 40 MG, QD
  15. METOLAZONE. [Concomitant]
     Active Substance: METOLAZONE
     Dosage: 2.5 MG, QOD
  16. CELEBREX [Concomitant]
     Active Substance: CELECOXIB
     Dosage: 200 MG, BID
  17. VITAMIN D [Concomitant]
     Active Substance: CHOLECALCIFEROL
     Dosage: 1000 IU, 2/W
  18. ALBUTEROL. [Concomitant]
     Active Substance: ALBUTEROL
     Dosage: UNK
  19. LISINOPRIL. [Concomitant]
     Active Substance: LISINOPRIL
     Dosage: 10 MG, BID
  20. SPIRONOLACTONE. [Concomitant]
     Active Substance: SPIRONOLACTONE
     Dosage: 25 MG, TID
  21. FORTEO [Suspect]
     Active Substance: TERIPARATIDE
     Indication: OSTEOPOROSIS
     Dosage: 20 UG, QD
     Route: 065
     Dates: start: 20120508
  22. MULTIVITAMIN [Concomitant]
     Active Substance: VITAMINS
     Dosage: UNK, QD
  23. CALCIUM 600 + D [Concomitant]
     Active Substance: CALCIUM\VITAMIN D
     Dosage: UNK, BID
  24. MUCINEX [Concomitant]
     Active Substance: GUAIFENESIN
     Indication: COUGH
     Dosage: UNK, PRN
  25. HALDOL [Concomitant]
     Active Substance: HALOPERIDOL
     Dosage: 1 MG, QD
  26. NEURONTIN [Concomitant]
     Active Substance: GABAPENTIN
     Dosage: UNK
  27. NORCO [Concomitant]
     Active Substance: ACETAMINOPHEN\HYDROCODONE BITARTRATE
     Dosage: UNK, TID
  28. POTASSIUM CHLORIDE. [Concomitant]
     Active Substance: POTASSIUM CHLORIDE
     Dosage: 20 MEQ, QD
  29. VITAMIN E [Concomitant]
     Active Substance: .ALPHA.-TOCOPHEROL
     Dosage: 400 IU, QD
  30. SPIRIVA [Concomitant]
     Active Substance: TIOTROPIUM BROMIDE MONOHYDRATE
     Dosage: 18 UG, BID
  31. PRILOSEC [Concomitant]
     Active Substance: OMEPRAZOLE MAGNESIUM
     Dosage: 40 MG, QD
  32. SYMBICORT [Concomitant]
     Active Substance: BUDESONIDE\FORMOTEROL FUMARATE DIHYDRATE
     Dosage: UNK, BID
  33. MAGNESIUM OXIDE. [Concomitant]
     Active Substance: MAGNESIUM OXIDE
     Dosage: 200 MG, BID

REACTIONS (20)
  - Device dislocation [Unknown]
  - Contusion [Unknown]
  - Chest discomfort [Unknown]
  - Myalgia [Unknown]
  - Injection site bruising [Unknown]
  - Compression fracture [Unknown]
  - Gait disturbance [Recovering/Resolving]
  - Musculoskeletal pain [Unknown]
  - Weight increased [Not Recovered/Not Resolved]
  - Pain in extremity [Unknown]
  - Dyspnoea [Not Recovered/Not Resolved]
  - Disturbance in attention [Unknown]
  - Bone pain [Unknown]
  - Chest pain [Unknown]
  - Eczema [Unknown]
  - Monarthritis [Unknown]
  - Rash pruritic [Unknown]
  - Erythema [Unknown]
  - Thoracic vertebral fracture [Unknown]
  - Skin atrophy [Unknown]

NARRATIVE: CASE EVENT DATE: 2012
